FAERS Safety Report 8715453 (Version 3)
Quarter: 2012Q4

REPORT INFORMATION
  Report Type: 
  Country: CA (occurrence: CA)
  Receive Date: 20120809
  Receipt Date: 20120927
  Transmission Date: 20130627
  Serious: Yes (Other)
  Sender: FDA-Public Use
  Company Number: US-ASTRAZENECA-2012SE54167

PATIENT
  Age: 34 Year
  Sex: Female

DRUGS (3)
  1. ENTOCORT [Suspect]
     Indication: CROHN^S DISEASE
     Route: 048
     Dates: end: 2011
  2. ENTOCORT [Suspect]
     Indication: MASTOCYTOSIS
     Route: 048
     Dates: end: 2011
  3. PREDNISONE [Concomitant]

REACTIONS (2)
  - Throat tightness [Recovered/Resolved]
  - Reaction to drug excipients [Recovered/Resolved]
